FAERS Safety Report 10136479 (Version 1)
Quarter: 2014Q2

REPORT INFORMATION
  Report Type: Spontaneous
  Country: US (occurrence: None)
  Receive Date: 20140425
  Receipt Date: 20140425
  Transmission Date: 20141212
  Serious: Yes (Hospitalization)
  Sender: FDA-Public Use
  Company Number: UTC-047182

PATIENT
  Age: 36 Year
  Sex: Female
  Weight: 61.23 kg

DRUGS (3)
  1. REMODULIN (10 MILLIGRAM/MILLILITERS, INJECTION FOR INFUSION) (TREPROSTINIL SODIUM) [Suspect]
     Indication: PULMONARY ARTERIAL HYPERTENSION
     Dosage: 136.8 UG/KG (0.095 UG/KG, 1 IN 1 MIN), SUBCUTANEOUS
     Dates: start: 20100519
  2. ADCIRCA (TADALAFIL) [Concomitant]
  3. FLOLAN (EPOPROSTENOL SODIUM) (1.5 MILLIGRAM, STERILE POWDER) (EPOPROSTENOL SODIUM) [Concomitant]

REACTIONS (3)
  - Septic embolus [None]
  - Pulmonary embolism [None]
  - Cerebral artery embolism [None]
